FAERS Safety Report 5981498-4 (Version None)
Quarter: 2008Q4

REPORT INFORMATION
  Report Type: 
  Country: None (occurrence: None)
  Receive Date: 20081202
  Receipt Date: 20081119
  Transmission Date: 20090506
  Serious: Yes (Hospitalization, Other)
  Sender: FDA-Public Use
  Company Number: 20612

PATIENT
  Age: 67 Year
  Sex: Female

DRUGS (2)
  1. CARBOPLATIN [Suspect]
     Indication: OVARIAN EPITHELIAL CANCER STAGE III
  2. TYKERB [Suspect]
     Indication: OVARIAN EPITHELIAL CANCER STAGE III
     Dosage: 750 MG DAILY PO
     Route: 048

REACTIONS (8)
  - ABDOMINAL PAIN [None]
  - DRUG TOXICITY [None]
  - FATIGUE [None]
  - GASTROOESOPHAGEAL REFLUX DISEASE [None]
  - NAUSEA [None]
  - SKIN HYPERPIGMENTATION [None]
  - VOMITING [None]
  - VULVOVAGINAL DRYNESS [None]
